FAERS Safety Report 8537033-X (Version None)
Quarter: 2012Q3

REPORT INFORMATION
  Report Type: 
  Country: None (occurrence: None)
  Receive Date: 20120725
  Receipt Date: 20120720
  Transmission Date: 20120928
  Serious: Yes (Hospitalization)
  Sender: FDA-Public Use
  Company Number: FR-PFIZER INC-2012175603

PATIENT
  Age: 89 Year
  Sex: Female

DRUGS (18)
  1. NEXIUM [Concomitant]
     Dosage: UNK
  2. POTASSIUM CHLORIDE [Concomitant]
     Dosage: UNK
  3. ASCORBIC ACID [Concomitant]
     Dosage: UNK
  4. DURAGESIC-100 [Concomitant]
     Dosage: UNK
  5. PROPRANOLOL [Concomitant]
     Dosage: UNK
  6. SPASFON-LYOC [Concomitant]
     Dosage: UNK
  7. PREVISCAN [Concomitant]
     Dosage: UNK
  8. POLYETHYLENE GLYCOL [Concomitant]
     Dosage: UNK
  9. ASPIRIN [Concomitant]
     Dosage: UNK
  10. ZYMAD [Concomitant]
     Dosage: UNK
  11. BONIVA [Concomitant]
     Dosage: UNK
  12. DEBRIDAT [Concomitant]
     Dosage: UNK
  13. LASIX [Concomitant]
     Dosage: UNK
  14. SIMVASTATIN [Concomitant]
     Dosage: UNK
  15. EFFEXOR [Suspect]
     Indication: DEPRESSION
     Dosage: 1 DOSAGE FORM/DAY
     Route: 048
     Dates: start: 20120130, end: 20120427
  16. XANAX [Suspect]
     Indication: ANXIETY
     Dosage: 0.25 MG SCORED TABLET; 1 DOSAGE FORM/DAY (IF NEEDED)
     Route: 048
     Dates: start: 20120427
  17. ACETAMINOPHEN [Concomitant]
     Dosage: UNK
  18. VASTAREL [Concomitant]
     Dosage: UNK

REACTIONS (4)
  - AGITATION [None]
  - DELIRIUM [None]
  - HALLUCINATION [None]
  - CONFUSIONAL STATE [None]
